FAERS Safety Report 5710001-9 (Version None)
Quarter: 2008Q2

REPORT INFORMATION
  Report Type: 
  Country: None (occurrence: None)
  Receive Date: 20080418
  Receipt Date: 20080407
  Transmission Date: 20081010
  Serious: Yes (Hospitalization, Other)
  Sender: FDA-Public Use
  Company Number: CA-PFIZER INC-2008030372

PATIENT
  Age: 70 Year
  Sex: Male

DRUGS (12)
  1. LYRICA [Suspect]
     Indication: PAIN
     Route: 048
  2. LYRICA [Suspect]
     Indication: ANGIOPATHY
  3. LYRICA [Suspect]
     Indication: SENSORY LOSS
  4. INSULIN [Concomitant]
  5. LANTUS [Concomitant]
  6. NOVORAPID [Concomitant]
  7. VITAMIN CAP [Concomitant]
  8. LASIX [Concomitant]
  9. ASAPHEN [Concomitant]
  10. QUININE [Concomitant]
  11. ZAROXOLYN [Concomitant]
  12. ALL OTHER THERAPEUTIC PRODUCTS [Concomitant]

REACTIONS (3)
  - BLOOD GLUCOSE DECREASED [None]
  - DIABETIC COMA [None]
  - EUPHORIC MOOD [None]
